FAERS Safety Report 8471101-6 (Version None)
Quarter: 2012Q2

REPORT INFORMATION
  Report Type: 
  Country: None (occurrence: None)
  Receive Date: 20120627
  Receipt Date: 20120619
  Transmission Date: 20120825
  Serious: Yes (Other)
  Sender: FDA-Public Use
  Company Number: BR-PFIZER INC-2012147474

PATIENT
  Age: 61 Year
  Sex: Female

DRUGS (2)
  1. XALATAN [Suspect]
     Indication: GLAUCOMA
     Dosage: 1.5 UG (ONE DROP), 1X/DAY
     Route: 047
     Dates: start: 19920619
  2. TIMOLOL [Concomitant]
     Indication: GLAUCOMA
     Dosage: ONE DROP, TWICE DAILY

REACTIONS (2)
  - INTRAOCULAR PRESSURE INCREASED [None]
  - EYE DISORDER [None]
